FAERS Safety Report 9856292 (Version 1)
Quarter: 2014Q1

REPORT INFORMATION
  Report Type: Spontaneous
  Country: US (occurrence: US)
  Receive Date: 20140130
  Receipt Date: 20140130
  Transmission Date: 20141002
  Serious: Yes (Other)
  Sender: FDA-Public Use
  Company Number: US-ALLERGAN-1401275US

PATIENT
  Sex: Male

DRUGS (2)
  1. OZURDEX [Suspect]
     Indication: PRODUCT USED FOR UNKNOWN INDICATION
     Dosage: 0.7 MG, SINGLE
     Route: 031
     Dates: start: 201309, end: 201309
  2. ANTI-VIRAL MEDICATION [Concomitant]
     Indication: CYTOMEGALOVIRUS INFECTION

REACTIONS (1)
  - Cytomegalovirus chorioretinitis [Not Recovered/Not Resolved]
